FAERS Safety Report 6646844-7 (Version None)
Quarter: 2010Q1

REPORT INFORMATION
  Report Type: 
  Country: None (occurrence: None)
  Receive Date: 20100323
  Receipt Date: 20100311
  Transmission Date: 20100710
  Serious: Yes (Death, Other)
  Sender: FDA-Public Use
  Company Number: US-PFIZER INC-2010010968

PATIENT
  Sex: Male

DRUGS (4)
  1. VFEND [Suspect]
     Indication: PNEUMONIA FUNGAL
     Dosage: 200 MG, 2X/DAY
     Dates: start: 20080401
  2. ACYCLOVIR [Concomitant]
     Dosage: UNK
  3. LEVAQUIN [Concomitant]
     Dosage: UNK
  4. FLOMAX [Concomitant]
     Dosage: UNK

REACTIONS (5)
  - DEATH [None]
  - HAEMOGLOBIN DECREASED [None]
  - PANCYTOPENIA [None]
  - PLATELET COUNT DECREASED [None]
  - WHITE BLOOD CELL COUNT DECREASED [None]
